FAERS Safety Report 7399725-8 (Version None)
Quarter: 2011Q2

REPORT INFORMATION
  Report Type: 
  Country: None (occurrence: None)
  Receive Date: 20110407
  Receipt Date: 20110329
  Transmission Date: 20111010
  Serious: Yes (Life-Threatening, Hospitalization, Other)
  Sender: FDA-Public Use
  Company Number: GB-AMGEN-GBRSP2011016793

PATIENT
  Age: 54 Year
  Sex: Male
  Weight: 68 kg

DRUGS (7)
  1. SPIRONOLACTONE [Concomitant]
     Dosage: 25 MG, QD
  2. CINACALCET HYDROCHLORIDE [Suspect]
     Dosage: 30 MG, 2 TIMES/WK
  3. CINACALCET HYDROCHLORIDE [Suspect]
     Dosage: 30 MG, UNK
  4. LOSARTAN POTASSIUM [Concomitant]
     Dosage: 100 MG, UNK
  5. BUMETANIDE [Concomitant]
     Dosage: 2 MG, UNK
  6. GLICLAZIDE [Concomitant]
     Dosage: 160 MG, UNK
  7. DIGOXIN [Concomitant]
     Dosage: 187.5 A?G, UNK

REACTIONS (10)
  - MUSCLE TWITCHING [None]
  - CARDIOVASCULAR INSUFFICIENCY [None]
  - HYPERCALCAEMIA [None]
  - DYSPNOEA [None]
  - LETHARGY [None]
  - CARDIOGENIC SHOCK [None]
  - ELECTROCARDIOGRAM QRS COMPLEX PROLONGED [None]
  - BLOOD CREATININE INCREASED [None]
  - DYSPNOEA PAROXYSMAL NOCTURNAL [None]
  - PARAESTHESIA [None]
